FAERS Safety Report 9182505 (Version 1)
Quarter: 2013Q1

REPORT INFORMATION
  Report Type: Spontaneous
  Country: US (occurrence: None)
  Receive Date: 20130321
  Receipt Date: 20130321
  Transmission Date: 20140127
  Serious: Yes (Life-Threatening, Other)
  Sender: FDA-Public Use
  Company Number: None

PATIENT
  Age: 26 Year
  Sex: Female
  Weight: 77.11 kg

DRUGS (2)
  1. FLUOXETINE [Suspect]
     Dosage: 40MG 1X/DAY ORAL
     Route: 048
     Dates: start: 201108
  2. FLUOXETINE [Suspect]
     Dosage: 40MG 1X/DAY ORAL
     Route: 048
     Dates: start: 201108

REACTIONS (5)
  - Mood altered [None]
  - Cognitive disorder [None]
  - Confusional state [None]
  - Disorientation [None]
  - Suicidal ideation [None]
